FAERS Safety Report 6252868-4 (Version None)
Quarter: 2009Q2

REPORT INFORMATION
  Report Type: 
  Country: None (occurrence: None)
  Receive Date: 20090629
  Receipt Date: 20090629
  Transmission Date: 20091009
  Serious: No
  Sender: FDA-Public Use
  Company Number: None

PATIENT
  Age: 78 Year
  Sex: Male
  Weight: 67.22 kg

DRUGS (2)
  1. CEFTRIAXONE [Suspect]
     Indication: ESCHERICHIA BACTERAEMIA
     Dosage: 1 GM BID IV
     Route: 042
     Dates: start: 20090220, end: 20090302
  2. METRONIDAZOLE [Suspect]
     Indication: CLOSTRIDIUM DIFFICILE COLITIS
     Dosage: 1 TAB TID PO
     Route: 048
     Dates: start: 20090221, end: 20090306

REACTIONS (4)
  - HYPOTENSION [None]
  - LEUKOCYTOSIS [None]
  - THROMBOCYTOPENIA [None]
  - UROSEPSIS [None]
